FAERS Safety Report 7562630-8 (Version None)
Quarter: 2011Q2

REPORT INFORMATION
  Report Type: 
  Country: None (occurrence: None)
  Receive Date: 20110622
  Receipt Date: 20110616
  Transmission Date: 20111010
  Serious: Yes (Disabling)
  Sender: FDA-Public Use
  Company Number: US-SANOFI-AVENTIS-2011SA039053

PATIENT
  Age: 86 Year
  Sex: Female

DRUGS (2)
  1. MULTAQ [Suspect]
     Indication: ATRIAL FIBRILLATION
     Route: 048
     Dates: start: 20110301, end: 20110609
  2. HUMALOG [Suspect]
     Route: 065

REACTIONS (5)
  - MUSCULAR WEAKNESS [None]
  - DECREASED APPETITE [None]
  - WALKING DISABILITY [None]
  - TREMOR [None]
  - BLOOD GLUCOSE FLUCTUATION [None]
